FAERS Safety Report 16046156 (Version 1)
Quarter: 2019Q1

REPORT INFORMATION
  Report Type: Spontaneous
  Country: US (occurrence: US)
  Receive Date: 20190307
  Receipt Date: 20190307
  Transmission Date: 20190418
  Serious: Yes (Hospitalization)
  Sender: FDA-Public Use
  Company Number: US-BION-007829

PATIENT
  Sex: Male

DRUGS (6)
  1. VITAMIN D [Suspect]
     Active Substance: CHOLECALCIFEROL
     Indication: IMMUNODEFICIENCY
     Dates: start: 20111203
  2. CLEMASTINE [Suspect]
     Active Substance: CLEMASTINE
     Indication: DEMYELINATION
     Dosage: 2 TABLETS TWICE DAILY
     Dates: start: 20120101
  3. AMPYRA [Suspect]
     Active Substance: DALFAMPRIDINE
     Indication: MULTIPLE SCLEROSIS
     Dates: start: 20111203
  4. SERTRALINE/SERTRALINE HYDROCHLORIDE [Suspect]
     Active Substance: SERTRALINE HYDROCHLORIDE
     Indication: DEPRESSION
     Dates: start: 20170303
  5. LOVASTATIN. [Suspect]
     Active Substance: LOVASTATIN
     Indication: BLOOD CHOLESTEROL INCREASED
     Dosage: 1 TABLET AT BED TIME
     Dates: start: 20170501, end: 20171101
  6. BUPROPION/BUPROPION HYDROCHLORIDE [Suspect]
     Active Substance: BUPROPION HYDROCHLORIDE
     Indication: DEPRESSION
     Dates: start: 20111203

REACTIONS (3)
  - Product use in unapproved indication [Not Recovered/Not Resolved]
  - Gait disturbance [Unknown]
  - Seizure [Unknown]

NARRATIVE: CASE EVENT DATE: 2012
